FAERS Safety Report 8917998 (Version 1)
Quarter: 2012Q4

REPORT INFORMATION
  Report Type: 
  Country: JP (occurrence: JP)
  Receive Date: 20121120
  Receipt Date: 20121120
  Transmission Date: 20130627
  Serious: Yes (Death, Hospitalization)
  Sender: FDA-Public Use
  Company Number: JP-009507513-2012SP003463

PATIENT
  Age: 68 Year
  Sex: Male
  Weight: 67 kg

DRUGS (36)
  1. TEMOZOLOMIDE [Suspect]
     Indication: GLIOSARCOMA
     Dosage: 75 mg/m2, QD
     Route: 048
     Dates: start: 20070117, end: 20070227
  2. TEMOZOLOMIDE [Suspect]
     Dosage: 150 mg/m2, QD
     Route: 048
     Dates: start: 20070326, end: 20070330
  3. TEMOZOLOMIDE [Suspect]
     Dosage: 150 mg/m2, QD
     Route: 048
     Dates: start: 20070425, end: 20070429
  4. TEMOZOLOMIDE [Suspect]
     Dosage: 150 mg/m2, qd
     Route: 048
     Dates: start: 20070523, end: 20070527
  5. TEMOZOLOMIDE [Suspect]
     Dosage: 150 mg/m2, qd
     Route: 048
     Dates: start: 20070620, end: 20070624
  6. TEMOZOLOMIDE [Suspect]
     Dosage: 150 mg/m2, qd
     Route: 048
     Dates: start: 20070718, end: 20070722
  7. TEMOZOLOMIDE [Suspect]
     Dosage: 150 mg/m2, qd
     Route: 048
     Dates: start: 20070815, end: 20070819
  8. TEMOZOLOMIDE [Suspect]
     Dosage: 150 mg/m2, qd
     Route: 048
     Dates: start: 20070912, end: 20070916
  9. TEMOZOLOMIDE [Suspect]
     Dosage: 150 mg/m2, qd
     Route: 048
     Dates: start: 20071017, end: 20071021
  10. TEMOZOLOMIDE [Suspect]
     Dosage: 150 mg/m2, qd
     Route: 048
     Dates: start: 20071114, end: 20071118
  11. TEMOZOLOMIDE [Suspect]
     Dosage: 150 mg/m2, qd
     Route: 048
     Dates: start: 20071212, end: 20071216
  12. TEMOZOLOMIDE [Suspect]
     Dosage: 150 mg/m2, qd
     Route: 048
     Dates: start: 20080109, end: 20080113
  13. TEMOZOLOMIDE [Suspect]
     Dosage: 150 mg/m2, qd
     Route: 048
     Dates: start: 20080206, end: 20080210
  14. TEMOZOLOMIDE [Suspect]
     Dosage: 150 mg/m2, qd
     Route: 048
     Dates: start: 20080305, end: 20080309
  15. TEMOZOLOMIDE [Suspect]
     Dosage: 150 mg/m2, qd
     Route: 048
     Dates: start: 20080402, end: 20080406
  16. TEMOZOLOMIDE [Suspect]
     Dosage: 150 mg/m2, qd
     Route: 048
     Dates: start: 20080507, end: 20080511
  17. TEMOZOLOMIDE [Suspect]
     Dosage: 150 mg/m2, qd
     Route: 048
     Dates: start: 20080604, end: 20080608
  18. TEMOZOLOMIDE [Suspect]
     Dosage: 150 mg/m2, qd
     Route: 048
     Dates: start: 20080709, end: 20080713
  19. TEMOZOLOMIDE [Suspect]
     Dosage: 150 mg/m2, qd
     Route: 048
     Dates: start: 20080806, end: 20080810
  20. TEMOZOLOMIDE [Suspect]
     Dosage: 150 mg/m2, qd
     Route: 048
     Dates: start: 20080902, end: 20080906
  21. TEMOZOLOMIDE [Suspect]
     Dosage: 150 mg/m2, qd
     Route: 048
     Dates: start: 20081001, end: 20081005
  22. TEMOZOLOMIDE [Suspect]
     Dosage: 150 mg/m2, UNK
     Route: 048
     Dates: start: 20081029, end: 20081102
  23. TEMOZOLOMIDE [Suspect]
     Dosage: 150 mg/m2, qd
     Route: 048
     Dates: start: 20081126, end: 20081130
  24. TEMOZOLOMIDE [Suspect]
     Dosage: 150 mg/m2, qd
     Route: 048
     Dates: start: 20081225, end: 20081229
  25. TEMOZOLOMIDE [Suspect]
     Dosage: 150 mg/m2, qd
     Route: 048
     Dates: start: 20081222, end: 20081226
  26. TEMOZOLOMIDE [Suspect]
     Dosage: 150 mg/m2, qd
     Route: 048
     Dates: start: 20090219, end: 20090223
  27. TEMOZOLOMIDE [Suspect]
     Dosage: 150 mg/m2, qd
     Route: 048
     Dates: start: 20090319, end: 20090323
  28. TEMOZOLOMIDE [Suspect]
     Dosage: 150 mg/m2, qd
     Route: 048
     Dates: start: 20090423, end: 20090427
  29. TEMOZOLOMIDE [Suspect]
     Dosage: 150 mg/m2, qd
     Route: 048
     Dates: start: 20090521, end: 20090525
  30. TEMOZOLOMIDE [Suspect]
     Dosage: 150 mg/m2, qd
     Route: 048
     Dates: start: 20090618, end: 20090622
  31. TEMOZOLOMIDE [Suspect]
     Dosage: 150 mg/m2, qd
     Route: 048
     Dates: start: 20090723, end: 20090727
  32. TEMOZOLOMIDE [Suspect]
     Dosage: 150 mg/m2, qd
     Route: 048
     Dates: start: 20090820, end: 20090824
  33. DEPAKENE [Concomitant]
     Indication: PRODUCT USED FOR UNKNOWN INDICATION
     Dosage: Daily dose unknown
     Route: 048
  34. TAKEPRON [Concomitant]
     Indication: PROPHYLAXIS
     Dosage: Daily dose unknown
     Route: 048
  35. ZOFRAN [Concomitant]
     Indication: PROPHYLAXIS
     Route: 048
     Dates: start: 20070117
  36. PREDNISOLONE [Concomitant]
     Dosage: Daily dose unknown
     Route: 048
     Dates: start: 20070319, end: 20080820

REACTIONS (7)
  - Epilepsy [Recovered/Resolved]
  - Death [Fatal]
  - Platelet count decreased [Recovered/Resolved]
  - Lymphocyte count decreased [Recovered/Resolved]
  - Monocyte count increased [Recovered/Resolved]
  - Protein total decreased [Recovered/Resolved]
  - Blood glucose increased [Unknown]
